FAERS Safety Report 10193988 (Version 1)
Quarter: 2014Q2

REPORT INFORMATION
  Report Type: Spontaneous
  Country: US (occurrence: US)
  Receive Date: 20140524
  Receipt Date: 20140524
  Transmission Date: 20141212
  Serious: No
  Sender: FDA-Public Use
  Company Number: US-SANOFI-AVENTIS-2013SA047097

PATIENT
  Age: 72 Year
  Sex: Female
  Weight: 72.57 kg

DRUGS (6)
  1. LANTUS SOLOSTAR [Suspect]
     Indication: TYPE 2 DIABETES MELLITUS
     Dosage: DOSE:10 UNIT(S)
     Route: 051
     Dates: start: 20130320
  2. SOLOSTAR [Suspect]
     Indication: TYPE 2 DIABETES MELLITUS
     Dates: start: 20130321
  3. CALCIUM [Concomitant]
     Indication: BONE DISORDER
  4. ALL OTHER THERAPEUTIC PRODUCTS [Concomitant]
     Indication: PAIN
  5. BENAZEPRIL [Concomitant]
     Indication: HYPERTENSION
  6. WARFARIN [Concomitant]
     Indication: THROMBOSIS PROPHYLAXIS

REACTIONS (2)
  - Blood glucose fluctuation [Unknown]
  - Blood glucose increased [Recovered/Resolved]
